FAERS Safety Report 15645071 (Version 1)
Quarter: 2018Q4

REPORT INFORMATION
  Report Type: Spontaneous
  Country: US (occurrence: US)
  Receive Date: 20181121
  Receipt Date: 20181121
  Transmission Date: 20190205
  Serious: Yes (Other)
  Sender: FDA-Public Use
  Company Number: PHHY2017US086420

PATIENT
  Age: 12 Year
  Sex: Male

DRUGS (2)
  1. MODAFINIL. [Suspect]
     Active Substance: MODAFINIL
     Indication: NARCOLEPSY
     Dosage: UNK
     Route: 065
  2. RITALIN [Suspect]
     Active Substance: METHYLPHENIDATE HYDROCHLORIDE
     Indication: ATTENTION DEFICIT/HYPERACTIVITY DISORDER
     Dosage: UNK
     Route: 065
     Dates: start: 2010

REACTIONS (2)
  - Aggression [Unknown]
  - Psychotic disorder [Unknown]
